FAERS Safety Report 8987732 (Version 2)
Quarter: 2013Q1

REPORT INFORMATION
  Report Type: Spontaneous
  Country: DE (occurrence: DE)
  Receive Date: 20121227
  Receipt Date: 20130213
  Transmission Date: 20140127
  Serious: Yes (Other)
  Sender: FDA-Public Use
  Company Number: GXKR2012DE003929

PATIENT
  Age: 61 Year
  Sex: Male
  Weight: 104 kg

DRUGS (10)
  1. CLINDAMYCIN [Suspect]
     Indication: SINOBRONCHITIS
     Dosage: 600 MG, BID
     Route: 048
     Dates: start: 20121213, end: 20121221
  2. MARCUMAR [Concomitant]
     Indication: ATRIAL FIBRILLATION
     Dosage: UNK UKN, UNK
     Route: 048
     Dates: start: 2005
  3. LISINOPRIL [Concomitant]
     Route: 048
  4. BISOPROLOL [Concomitant]
     Route: 048
  5. EFEROX [Concomitant]
     Route: 048
  6. JANUVIA [Concomitant]
     Indication: DIABETES MELLITUS
     Route: 048
  7. PRAVASTATIN [Concomitant]
     Route: 048
  8. PANTOPRAZOL [Concomitant]
     Route: 048
  9. METFORMIN [Concomitant]
     Route: 048
  10. DIGITOXIN [Concomitant]
     Route: 048

REACTIONS (2)
  - Prothrombin time prolonged [Recovered/Resolved]
  - International normalised ratio increased [Recovered/Resolved]
